FAERS Safety Report 13529408 (Version 1)
Quarter: 2017Q2

REPORT INFORMATION
  Report Type: Spontaneous
  Country: US (occurrence: US)
  Receive Date: 20170509
  Receipt Date: 20170509
  Transmission Date: 20170830
  Serious: No
  Sender: FDA-Public Use
  Company Number: US-ROCHE-GNE308622

PATIENT
  Age: 51 Year
  Sex: Female
  Weight: 91.1 kg

DRUGS (15)
  1. CHOLESTEROL PILLS (UNK INGREDIENTS) [Concomitant]
     Indication: BLOOD CHOLESTEROL
  2. XOLAIR [Suspect]
     Active Substance: OMALIZUMAB
     Indication: ASTHMA
     Dosage: 300 MG, Q4W
     Route: 065
     Dates: start: 20100916, end: 20101014
  3. COMBINATION CHEMOTHERAPY DRUGS [Suspect]
     Active Substance: UNSPECIFIED INGREDIENT
  4. FORADIL [Concomitant]
     Active Substance: FORMOTEROL FUMARATE
     Indication: PRODUCT USED FOR UNKNOWN INDICATION
  5. SINGULAIR [Concomitant]
     Active Substance: MONTELUKAST SODIUM
     Indication: PRODUCT USED FOR UNKNOWN INDICATION
     Dosage: 10 MG, UNK
     Route: 065
  6. XYZAL [Concomitant]
     Active Substance: LEVOCETIRIZINE DIHYDROCHLORIDE
     Indication: PRODUCT USED FOR UNKNOWN INDICATION
  7. ALLERGY MEDICATION (UNK INGREDIENTS) [Concomitant]
     Indication: HYPERSENSITIVITY
  8. XOLAIR [Suspect]
     Active Substance: OMALIZUMAB
     Indication: RUBBER SENSITIVITY
  9. ANTIHYPERTENSIVE [Concomitant]
     Active Substance: UNSPECIFIED INGREDIENT
     Indication: HYPERTENSION
  10. ASTHMA MEDICATION [Concomitant]
     Active Substance: UNSPECIFIED INGREDIENT
     Indication: ASTHMA
  11. BENADRYL [Concomitant]
     Active Substance: DIPHENHYDRAMINE HYDROCHLORIDE
     Indication: PRODUCT USED FOR UNKNOWN INDICATION
     Dosage: 50 MG, UNK
     Route: 065
  12. DIABETIC MEDICATION NOS [Concomitant]
     Indication: DIABETES MELLITUS
  13. RANITIDINE. [Concomitant]
     Active Substance: RANITIDINE
     Indication: PRODUCT USED FOR UNKNOWN INDICATION
  14. ATROVENT INHALER [Concomitant]
     Indication: PRODUCT USED FOR UNKNOWN INDICATION
  15. PREDNISONE. [Concomitant]
     Active Substance: PREDNISONE
     Indication: PRODUCT USED FOR UNKNOWN INDICATION
     Dosage: 40 MG, UNK
     Route: 065

REACTIONS (2)
  - Fatigue [Recovering/Resolving]
  - Headache [None]

NARRATIVE: CASE EVENT DATE: 20100916
